FAERS Safety Report 6740610-X (Version None)
Quarter: 2010Q2

REPORT INFORMATION
  Report Type: 
  Country: None (occurrence: None)
  Receive Date: 20100525
  Receipt Date: 20100511
  Transmission Date: 20101027
  Serious: Yes (Other)
  Sender: FDA-Public Use
  Company Number: DE-MYLANLABS-2010S1008293

PATIENT
  Age: 20 Year
  Sex: Female

DRUGS (5)
  1. METHOTREXATE [Suspect]
     Indication: ACUTE LYMPHOCYTIC LEUKAEMIA
     Dosage: 15MG ON DAYS 3 AND 11 OF INDUCTION THERAPY
     Route: 037
     Dates: start: 20081001
  2. IMATINIB [Suspect]
     Indication: ACUTE LYMPHOCYTIC LEUKAEMIA
     Dosage: FROM DAY 6 OF FIRST INDUCTION THERAPY
     Route: 065
     Dates: start: 20080801
  3. CYCLOPHOSPHAMIDE [Concomitant]
     Indication: ACUTE LYMPHOCYTIC LEUKAEMIA
     Route: 065
     Dates: start: 20081001
  4. CYTARABINE [Concomitant]
     Indication: ACUTE LYMPHOCYTIC LEUKAEMIA
     Dosage: 125MG ON DAYS 3-6 AND 10-11 OF INDUCTION THERAPY
     Route: 065
     Dates: start: 20081001
  5. MERCAPTOPURINE [Concomitant]
     Indication: ACUTE LYMPHOCYTIC LEUKAEMIA
     Dosage: 100MG ON DAYS 1-11 OF INDUCTION THERAPY
     Route: 065
     Dates: start: 20081001

REACTIONS (2)
  - CNS VENTRICULITIS [None]
  - HYDROCEPHALUS [None]
